FAERS Safety Report 5999719-0 (Version None)
Quarter: 2008Q4

REPORT INFORMATION
  Report Type: 
  Country: None (occurrence: None)
  Receive Date: 20081215
  Receipt Date: 20081202
  Transmission Date: 20090506
  Serious: Yes (Other)
  Sender: FDA-Public Use
  Company Number: US-ROCHE-600604

PATIENT
  Sex: Female

DRUGS (3)
  1. PEGASYS [Suspect]
     Indication: HEPATITIS C
     Route: 065
     Dates: start: 20080312
  2. RIBAVIRIN [Suspect]
     Indication: HEPATITIS C
     Route: 065
     Dates: start: 20080312
  3. RIBAVIRIN [Suspect]
     Route: 065

REACTIONS (2)
  - ACUTE FEBRILE NEUTROPHILIC DERMATOSIS [None]
  - HAEMOGLOBIN ABNORMAL [None]
